FAERS Safety Report 7334526-8 (Version None)
Quarter: 2011Q1

REPORT INFORMATION
  Report Type: 
  Country: None (occurrence: None)
  Receive Date: 20110307
  Receipt Date: 20110222
  Transmission Date: 20110831
  Serious: Yes (Hospitalization, Other)
  Sender: FDA-Public Use
  Company Number: BE-ELI_LILLY_AND_COMPANY-BE201101007516

PATIENT
  Sex: Female

DRUGS (3)
  1. ZYPADHERA [Suspect]
     Indication: SCHIZOPHRENIA, PARANOID TYPE
     Dosage: 300 MG, TWICE EVERY 2WEEKS
  2. ZYPADHERA [Suspect]
     Dosage: 405 MG, TWICE A MONTH
  3. LORAZEPAM [Concomitant]

REACTIONS (3)
  - HALLUCINATION [None]
  - DRUG INEFFECTIVE [None]
  - INTENTIONAL SELF-INJURY [None]
